FAERS Safety Report 10014390 (Version 1)
Quarter: 2014Q1

REPORT INFORMATION
  Report Type: Report from Study
  Country: MX (occurrence: MX)
  Receive Date: 20140317
  Receipt Date: 20140317
  Transmission Date: 20141002
  Serious: Yes (Other)
  Sender: FDA-Public Use
  Company Number: MX-ROCHE-1365418

PATIENT
  Age: 47 Year
  Sex: Female
  Weight: 56 kg

DRUGS (3)
  1. AVASTIN [Suspect]
     Indication: BREAST CANCER
     Dosage: 1 PER CYCLE, CYCLE = 21 DAYS
     Route: 065
  2. XELODA [Suspect]
     Indication: BREAST CANCER
     Dosage: 14 PER CYCLE, CYCLE = 15 DAYS
     Route: 048
  3. PACLITAXEL [Suspect]
     Indication: BREAST CANCER
     Route: 065

REACTIONS (3)
  - Pain [Unknown]
  - Palmar-plantar erythrodysaesthesia syndrome [Unknown]
  - Disease progression [Unknown]
